FAERS Safety Report 17203444 (Version 1)
Quarter: 2019Q4

REPORT INFORMATION
  Report Type: Spontaneous
  Country: CA (occurrence: CA)
  Receive Date: 20191226
  Receipt Date: 20191226
  Transmission Date: 20200122
  Serious: Yes (Other)
  Sender: FDA-Public Use
  Company Number: CA-TEVA-2019-CA-1156852

PATIENT
  Age: 75 Year
  Sex: Female
  Weight: 73 kg

DRUGS (3)
  1. PIROXICAM. [Concomitant]
     Active Substance: PIROXICAM
  2. ACETAMINOPHEN/OXYCODONE HYDROCHLORIDE [Concomitant]
     Active Substance: ACETAMINOPHEN\OXYCODONE HYDROCHLORIDE
  3. PREGABALIN. [Suspect]
     Active Substance: PREGABALIN
     Indication: NEURALGIA
     Dosage: 300 MILLIGRAM DAILY;
     Route: 065

REACTIONS (5)
  - Nausea [Recovered/Resolved]
  - Drug ineffective [Recovered/Resolved]
  - Constipation [Recovered/Resolved]
  - Product substitution issue [Recovered/Resolved]
  - Akinaesthesia [Recovered/Resolved]
